FAERS Safety Report 7819782-1 (Version None)
Quarter: 2011Q4

REPORT INFORMATION
  Report Type: 
  Country: None (occurrence: None)
  Receive Date: 20111018
  Receipt Date: 20110720
  Transmission Date: 20120403
  Serious: No
  Sender: FDA-Public Use
  Company Number: US-ASTRAZENECA-2011SE43295

PATIENT

DRUGS (1)
  1. SYMBICORT [Suspect]
     Indication: CHRONIC OBSTRUCTIVE PULMONARY DISEASE
     Dosage: AEROSOL
     Route: 055

REACTIONS (9)
  - ADVERSE DRUG REACTION [None]
  - MUSCLE SPASMS [None]
  - SINUSITIS [None]
  - CANDIDIASIS [None]
  - RASH MACULAR [None]
  - THROAT IRRITATION [None]
  - VOMITING [None]
  - DYSPNOEA [None]
  - REFLUX LARYNGITIS [None]
